FAERS Safety Report 9539227 (Version 1)
Quarter: 2013Q2

REPORT INFORMATION
  Report Type: Spontaneous
  Country: US (occurrence: None)
  Receive Date: 20130521
  Receipt Date: 20130521
  Transmission Date: 20140414
  Serious: No
  Sender: FDA-Public Use
  Company Number: 1000043390

PATIENT
  Age: 83 Year
  Sex: Female

DRUGS (5)
  1. TUDORZA PRESSAIR (ACLIDINIUM BROMIDE) (400 MICROGRAM, POWDER) [Suspect]
     Indication: CHRONIC OBSTRUCTIVE PULMONARY DISEASE
     Dosage: (400 MCG, 2 IN 1 D)
     Route: 048
     Dates: start: 20130309
  2. LOSARTAN [Concomitant]
  3. VERAPAMIL [Concomitant]
  4. AMLODIPINE [Concomitant]
  5. LEVOXYL [Concomitant]

REACTIONS (1)
  - Abdominal distension [None]
